FAERS Safety Report 7607100-3 (Version None)
Quarter: 2011Q3

REPORT INFORMATION
  Report Type: 
  Country: None (occurrence: None)
  Receive Date: 20110713
  Receipt Date: 20110630
  Transmission Date: 20111222
  Serious: Yes (Hospitalization)
  Sender: FDA-Public Use
  Company Number: JP-CELGENEUS-087-21880-11012565

PATIENT
  Sex: Male

DRUGS (13)
  1. ACYCLOVIR [Concomitant]
     Indication: PROPHYLAXIS
     Dosage: 200 MILLIGRAM
     Route: 048
     Dates: start: 20110119
  2. ALLOPURINOL [Concomitant]
     Dosage: 100 MILLIGRAM
     Route: 048
     Dates: start: 20110119
  3. TRUVADA [Concomitant]
     Indication: HIV INFECTION
     Dosage: 1 TABLET
     Route: 048
     Dates: start: 20110119
  4. REBAMIPIDE [Concomitant]
     Dosage: 200 MILLIGRAM
     Route: 048
     Dates: start: 20110119
  5. SULFAMETHOXAZOLE [Concomitant]
     Indication: PROPHYLAXIS
     Dosage: 2 TABLET
     Route: 048
     Dates: start: 20110119
  6. LEVOFLOXACIN [Concomitant]
     Dosage: 400 MILLIGRAM
     Route: 048
     Dates: start: 20110119
  7. BIOFERMN R [Concomitant]
     Indication: PROPHYLAXIS
     Dosage: 2 TABLET
     Route: 048
     Dates: start: 20110119
  8. LANSOPRAZOLE [Concomitant]
     Dosage: 30 MILLIGRAM
     Route: 048
     Dates: start: 20110119, end: 20110123
  9. METHYCOBAL [Concomitant]
     Dosage: 1500 MICROGRAM
     Route: 048
     Dates: start: 20110119
  10. REVLIMID [Suspect]
     Indication: MULTIPLE MYELOMA
     Dosage: 25 MILLIGRAM
     Route: 048
     Dates: start: 20110119, end: 20110123
  11. DEXAMETHASONE [Suspect]
     Indication: MULTIPLE MYELOMA
     Dosage: 40 MILLIGRAM
     Route: 048
     Dates: start: 20110119, end: 20110121
  12. ASPIRIN [Concomitant]
     Dosage: 100 MILLIGRAM
     Route: 065
  13. ISENTRESS [Concomitant]
     Indication: HIV INFECTION
     Dosage: 800 MILLIGRAM
     Route: 048
     Dates: start: 20110119

REACTIONS (5)
  - INTESTINAL PERFORATION [None]
  - NEUTROPENIA [None]
  - INFECTIOUS PERITONITIS [None]
  - ERYTHEMA [None]
  - HEPATIC FUNCTION ABNORMAL [None]
